FAERS Safety Report 12170395 (Version 1)
Quarter: 2016Q1

REPORT INFORMATION
  Report Type: Spontaneous
  Country: US (occurrence: US)
  Receive Date: 20160311
  Receipt Date: 20160311
  Transmission Date: 20160526
  Serious: Yes (Hospitalization)
  Sender: FDA-Public Use
  Company Number: US-BEH-2016059622

PATIENT
  Age: 74 Year
  Sex: Female
  Weight: 76.6 kg

DRUGS (14)
  1. DIPHENHYDRAMINE. [Concomitant]
     Active Substance: DIPHENHYDRAMINE
  2. IMDUR [Concomitant]
     Active Substance: ISOSORBIDE MONONITRATE
  3. TENORMIN [Concomitant]
     Active Substance: ATENOLOL
  4. BERINERT [Suspect]
     Active Substance: HUMAN C1-ESTERASE INHIBITOR
     Indication: HEREDITARY ANGIOEDEMA
     Dosage: AS DIRECTED
     Route: 042
  5. NORCO [Concomitant]
     Active Substance: ACETAMINOPHEN\HYDROCODONE BITARTRATE
  6. ZOCOR [Concomitant]
     Active Substance: SIMVASTATIN
  7. TEGRETOL [Concomitant]
     Active Substance: CARBAMAZEPINE
  8. DANAZOL. [Concomitant]
     Active Substance: DANAZOL
  9. SODIUM CHLORIDE. [Concomitant]
     Active Substance: SODIUM CHLORIDE
  10. CELEBREX [Concomitant]
     Active Substance: CELECOXIB
  11. HEPARIN [Concomitant]
     Active Substance: HEPARIN SODIUM
  12. STERILE WATER [Concomitant]
     Active Substance: WATER
  13. EPIPEN [Concomitant]
     Active Substance: EPINEPHRINE
  14. TOPROL XL [Concomitant]
     Active Substance: METOPROLOL SUCCINATE

REACTIONS (1)
  - Pneumonia [Recovered/Resolved]

NARRATIVE: CASE EVENT DATE: 20160221
